FAERS Safety Report 10128088 (Version 2)
Quarter: 2014Q2

REPORT INFORMATION
  Report Type: Spontaneous
  Country: AT (occurrence: AT)
  Receive Date: 20140428
  Receipt Date: 20140428
  Transmission Date: 20141212
  Serious: Yes (Hospitalization)
  Sender: FDA-Public Use
  Company Number: AT-009507513-1404AUT009791

PATIENT
  Age: 64 Year
  Sex: Female

DRUGS (1)
  1. CELESTAN BIPHASE [Suspect]
     Indication: PLANTAR FASCIITIS
     Dosage: 1 ML, ONCE
     Route: 042
     Dates: start: 201307, end: 201307

REACTIONS (1)
  - Bone marrow oedema [Recovering/Resolving]
